FAERS Safety Report 10751962 (Version 2)
Quarter: 2016Q1

REPORT INFORMATION
  Report Type: Spontaneous
  Country: US (occurrence: US)
  Receive Date: 20150130
  Receipt Date: 20160211
  Transmission Date: 20160525
  Serious: No
  Sender: FDA-Public Use
  Company Number: US-ENDO PHARMACEUTICALS INC.-TEST20140001

PATIENT
  Sex: Male

DRUGS (2)
  1. FORTESTA [Concomitant]
     Active Substance: TESTOSTERONE
     Indication: PRODUCT USED FOR UNKNOWN INDICATION
     Dosage: UNK
     Route: 065
  2. TESTOSTERONE GEL [Suspect]
     Active Substance: TESTOSTERONE
     Indication: ASTHENIA
     Route: 061
     Dates: start: 201410, end: 201410

REACTIONS (4)
  - Asthenopia [Recovered/Resolved]
  - Drug ineffective [Recovered/Resolved]
  - Swelling face [Recovered/Resolved]
  - Erythema [Recovered/Resolved]

NARRATIVE: CASE EVENT DATE: 201410
